FAERS Safety Report 8551711-8 (Version None)
Quarter: 2012Q3

REPORT INFORMATION
  Report Type: 
  Country: None (occurrence: None)
  Receive Date: 20120730
  Receipt Date: 20120720
  Transmission Date: 20120928
  Serious: Yes (Hospitalization)
  Sender: FDA-Public Use
  Company Number: US-ASTRAZENECA-2011SE00639

PATIENT
  Age: 64 Year
  Sex: Female

DRUGS (5)
  1. NEXIUM [Suspect]
     Indication: GASTROOESOPHAGEAL REFLUX DISEASE
     Route: 048
  2. PREDNISONE [Concomitant]
  3. PULMICORT [Suspect]
     Route: 055
  4. PULMICORT [Suspect]
     Route: 055
  5. ATACAND HCT [Suspect]
     Route: 048

REACTIONS (8)
  - ASTHMA [None]
  - EXPIRED DRUG ADMINISTERED [None]
  - CEREBROVASCULAR ACCIDENT [None]
  - DRUG DOSE OMISSION [None]
  - GASTROOESOPHAGEAL REFLUX DISEASE [None]
  - BLOOD PRESSURE INCREASED [None]
  - MALAISE [None]
  - ADVERSE EVENT [None]
